FAERS Safety Report 4655072-6 (Version None)
Quarter: 2005Q2

REPORT INFORMATION
  Report Type: 
  Country: None (occurrence: None)
  Receive Date: 20050503
  Receipt Date: 20050421
  Transmission Date: 20051028
  Serious: Yes (Hospitalization)
  Sender: FDA-Public Use
  Company Number: 2005AP02502

PATIENT
  Age: 19 Year
  Sex: Female

DRUGS (8)
  1. PROPOFOL [Suspect]
     Indication: SENSORY DISTURBANCE
     Dosage: 130 MG DAILY IV
     Route: 042
     Dates: start: 20031114, end: 20031114
  2. AMPICILLIN [Suspect]
     Indication: SENSORY DISTURBANCE
     Dosage: 1 G DAILY
     Dates: start: 20031114, end: 20031114
  3. FENTANYL [Suspect]
     Indication: SENSORY DISTURBANCE
     Dosage: 75 UG DAILY
     Dates: start: 20031114, end: 20031114
  4. SOLU-MEDROL [Suspect]
     Indication: SENSORY DISTURBANCE
     Dosage: 125 MG DAILY IV
     Route: 042
     Dates: start: 20031114, end: 20031114
  5. MIDAZOLAM [Suspect]
     Indication: SENSORY DISTURBANCE
     Dosage: 2 MG DAILY
     Dates: start: 20031114, end: 20031114
  6. DYNASTAT [Suspect]
     Indication: SENSORY DISTURBANCE
     Dosage: 40 MG DAILY IV
     Route: 042
     Dates: start: 20031114, end: 20031114
  7. ROCURONIUM BROMIDE [Suspect]
     Indication: SENSORY DISTURBANCE
     Dosage: 20 MG DAILY IV
     Route: 042
     Dates: start: 20031114, end: 20031114
  8. ULTANE [Suspect]
     Indication: SENSORY DISTURBANCE
     Dates: start: 20031114, end: 20031114

REACTIONS (7)
  - AGITATION [None]
  - AKATHISIA [None]
  - ANXIETY [None]
  - DYSKINESIA [None]
  - EYE MOVEMENT DISORDER [None]
  - HYPOVENTILATION [None]
  - TEARFULNESS [None]
